FAERS Safety Report 24273101 (Version 1)
Quarter: 2024Q3

REPORT INFORMATION
  Report Type: Spontaneous
  Country: US (occurrence: US)
  Receive Date: 20240902
  Receipt Date: 20240902
  Transmission Date: 20241016
  Serious: Yes (Other)
  Sender: APOTEX
  Company Number: US-APOTEX-2024AP009706

PATIENT
  Age: 67 Year
  Sex: Female

DRUGS (1)
  1. MELPHALAN [Suspect]
     Active Substance: MELPHALAN
     Indication: Primary amyloidosis
     Dosage: 200 MILLIGRAM/SQ. METER
     Route: 065

REACTIONS (5)
  - Oesophageal ulcer [Recovering/Resolving]
  - Acute oesophageal mucosal lesion [Recovering/Resolving]
  - Upper gastrointestinal haemorrhage [Recovering/Resolving]
  - Oesophagitis [Recovering/Resolving]
  - Odynophagia [Recovering/Resolving]
